FAERS Safety Report 20426683 (Version 2)
Quarter: 2023Q1

REPORT INFORMATION
  Report Type: Spontaneous
  Country: JP (occurrence: JP)
  Receive Date: 20220204
  Receipt Date: 20230220
  Transmission Date: 20230417
  Serious: Yes (Other)
  Sender: FDA-Public Use
  Company Number: JP-TAKEDA-2021TJP102535

PATIENT
  Age: 9 Decade
  Sex: Male

DRUGS (1)
  1. CABOMETYX [Suspect]
     Active Substance: CABOZANTINIB S-MALATE
     Indication: Hepatocellular carcinoma
     Dosage: 40 MG, QD
     Route: 048
     Dates: start: 20210723, end: 20210725

REACTIONS (2)
  - Blood thyroid stimulating hormone increased [Recovering/Resolving]
  - Thyroxine free decreased [Unknown]

NARRATIVE: CASE EVENT DATE: 20210725
